FAERS Safety Report 23593596 (Version 1)
Quarter: 2024Q1

REPORT INFORMATION
  Report Type: Report from Study
  Country: US (occurrence: US)
  Receive Date: 20240304
  Receipt Date: 20240304
  Transmission Date: 20240409
  Serious: Yes (Congenital Anomaly)
  Sender: FDA-Public Use
  Company Number: US-ABBVIE-5658949

PATIENT
  Sex: Female
  Weight: 2.721 kg

DRUGS (1)
  1. HUMIRA [Suspect]
     Active Substance: ADALIMUMAB
     Indication: Maternal exposure timing unspecified
     Dosage: FORM STRENGTH: 40 MILLIGRAM
     Route: 064

REACTIONS (8)
  - Congenital torticollis [Unknown]
  - Foetal exposure during pregnancy [Unknown]
  - Plagiocephaly [Unknown]
  - Allergic colitis [Unknown]
  - Milk allergy [Unknown]
  - Hypotonia [Unknown]
  - Jaundice neonatal [Recovered/Resolved]
  - Exposure via breast milk [Unknown]

NARRATIVE: CASE EVENT DATE: 20230101
